FAERS Safety Report 26073841 (Version 1)
Quarter: 2025Q4

REPORT INFORMATION
  Report Type: Spontaneous
  Country: AU (occurrence: AU)
  Receive Date: 20251121
  Receipt Date: 20251121
  Transmission Date: 20260117
  Serious: Yes (Other)
  Sender: PHARMOBEDIENT CONSULTING, LLC
  Company Number: AU-Pharmobedient-000506

PATIENT
  Age: 67 Year
  Sex: Male

DRUGS (3)
  1. SULFAMETHOXAZOLE AND TRIMETHOPRIM [Suspect]
     Active Substance: SULFAMETHOXAZOLE\TRIMETHOPRIM
     Indication: Nocardiosis
  2. LINEZOLID [Suspect]
     Active Substance: LINEZOLID
     Indication: Nocardiosis
  3. CIPROFLOXACIN [Concomitant]
     Active Substance: CIPROFLOXACIN
     Indication: Nocardiosis

REACTIONS (2)
  - Hyperkalaemia [Unknown]
  - Myelosuppression [Unknown]
